FAERS Safety Report 10061135 (Version 2)
Quarter: 2014Q2

REPORT INFORMATION
  Report Type: Spontaneous
  Country: US (occurrence: US)
  Receive Date: 20140406
  Receipt Date: 20140422
  Transmission Date: 20141212
  Serious: Yes (Other)
  Sender: FDA-Public Use
  Company Number: US-BRISTOL-MYERS SQUIBB COMPANY-20574935

PATIENT
  Age: 70 Year
  Sex: Female
  Weight: 80.72 kg

DRUGS (7)
  1. BYDUREON [Suspect]
     Indication: TYPE 2 DIABETES MELLITUS
     Route: 058
     Dates: start: 20130917, end: 20140323
  2. METFORMIN HCL [Suspect]
     Indication: TYPE 2 DIABETES MELLITUS
  3. CRESTOR [Concomitant]
  4. SYNTHROID [Concomitant]
  5. ENALAPRIL [Concomitant]
  6. MULTIVITAMIN [Concomitant]
  7. VITAMIN D [Concomitant]

REACTIONS (3)
  - Pancreatitis [Unknown]
  - Hypoglycaemia [Unknown]
  - Medication error [Unknown]
